FAERS Safety Report 21517642 (Version 1)
Quarter: 2022Q4

REPORT INFORMATION
  Report Type: Spontaneous
  Country: US (occurrence: US)
  Receive Date: 20221028
  Receipt Date: 20221028
  Transmission Date: 20230113
  Serious: Yes (Hospitalization, Other)
  Sender: FDA-Public Use
  Company Number: US-CADILA HEALTHCARE LIMITED-US-ZYDUS-083813

PATIENT

DRUGS (10)
  1. BACLOFEN [Suspect]
     Active Substance: BACLOFEN
     Indication: Product used for unknown indication
     Dosage: 10 DOSAGE FORM
     Route: 065
  2. LEVETIRACETAM [Suspect]
     Active Substance: LEVETIRACETAM
     Indication: Metabolic alkalosis
     Dosage: 1 GRAM
     Route: 042
  3. LEVETIRACETAM [Suspect]
     Active Substance: LEVETIRACETAM
     Indication: Altered state of consciousness
  4. MIDAZOLAM [Concomitant]
     Active Substance: MIDAZOLAM
     Indication: Altered state of consciousness
     Dosage: 1 GRAM
     Route: 042
  5. MIDAZOLAM [Concomitant]
     Active Substance: MIDAZOLAM
     Indication: Metabolic alkalosis
  6. ONDANSETRON [Concomitant]
     Active Substance: ONDANSETRON
     Indication: Metabolic alkalosis
     Dosage: 4 MILLIGRAM
     Route: 042
  7. RABEPRAZOLE [Concomitant]
     Active Substance: RABEPRAZOLE
     Indication: Altered state of consciousness
     Dosage: 20 MILLIGRAM
     Route: 042
  8. RABEPRAZOLE [Concomitant]
     Active Substance: RABEPRAZOLE
     Indication: Metabolic alkalosis
  9. SODIUM CHLORIDE [Concomitant]
     Active Substance: SODIUM CHLORIDE
     Indication: Product used for unknown indication
     Dosage: UNK
     Route: 065
  10. SODIUM BICARBONATE [Concomitant]
     Active Substance: SODIUM BICARBONATE
     Indication: Product used for unknown indication
     Dosage: UNK
     Route: 065

REACTIONS (4)
  - Metabolic alkalosis [Unknown]
  - Altered state of consciousness [Unknown]
  - Overdose [Unknown]
  - Drug ineffective [Unknown]
